FAERS Safety Report 10220924 (Version 1)
Quarter: 2014Q1

REPORT INFORMATION
  Report Type: Spontaneous
  Country: US (occurrence: None)
  Receive Date: 20140306
  Receipt Date: 20140306
  Transmission Date: 20141002
  Serious: Yes (Other)
  Sender: FDA-Public Use
  Company Number: 163-21880-13100163

PATIENT
  Age: 86 Year
  Sex: Female
  Weight: 59 kg

DRUGS (14)
  1. REVLIMIDE(LENALIDOMIDE)(5 MILLIGRAM, CAPSULES) [Suspect]
     Indication: PLASMA CELL MYELOMA
     Route: 048
     Dates: start: 201007
  2. LOMOTIL(LOMOTIL)(TABLETS) [Concomitant]
  3. METOPROLOL TARTRATE(METOPROLOL) [Concomitant]
  4. DONEPEZIL HCL (DONEPEZIL HYDROCHLORIDE)(TABLETS) [Concomitant]
  5. NORTRIPTYLINE HCL (NORTRIPTYLINE HYDROCHLORIDE)(CAPSULES) [Concomitant]
  6. ASPIRIN(ACETYLSALICYLIC ACID)(CHEWABLE TABLET) [Concomitant]
  7. DIAZEPAM(DIAZPEMA)(TABLETS) [Concomitant]
  8. ZOFRAN(ONDANSETRON HYDROCHLORIDE)(TABLETS) [Concomitant]
  9. TRIAMETERENE-HCTZ(DYAZIDE) [Concomitant]
  10. HYOSCYAMINE(HYOSCYAMINE) [Concomitant]
  11. TRADJENTA(LINAGLIPTIN)(TABLETS) [Concomitant]
  12. POTASSIUM(POTASSIUM)(TABLETS) [Concomitant]
  13. ENTOCORT(BUDESONIDE)(CAPSULES) [Concomitant]
  14. MAGNESIUM(MAGNESIUM)(TABLETS) [Concomitant]

REACTIONS (2)
  - Angina pectoris [None]
  - Nausea [None]
